FAERS Safety Report 17276812 (Version 1)
Quarter: 2020Q1

REPORT INFORMATION
  Report Type: Spontaneous
  Country: US (occurrence: US)
  Receive Date: 20200116
  Receipt Date: 20200116
  Transmission Date: 20200409
  Serious: Yes (Other)
  Sender: FDA-Public Use
  Company Number: US-PFIZER INC-2020016940

PATIENT
  Age: 66 Year
  Sex: Female
  Weight: 56.7 kg

DRUGS (2)
  1. CHANTIX [Suspect]
     Active Substance: VARENICLINE TARTRATE
     Dosage: 1 TABLET TWICE DAILY: MORNING AND EVENING
     Route: 048
     Dates: start: 201912, end: 20191230
  2. CHANTIX [Suspect]
     Active Substance: VARENICLINE TARTRATE
     Indication: SMOKING CESSATION THERAPY
     Dosage: 1 TABLET FOR FIRST WEEK
     Route: 048
     Dates: start: 20191201, end: 201912

REACTIONS (5)
  - Nightmare [Recovered/Resolved]
  - Myocardial infarction [Unknown]
  - Disease recurrence [Unknown]
  - Body height decreased [Unknown]
  - Dyspepsia [Unknown]

NARRATIVE: CASE EVENT DATE: 201912
